FAERS Safety Report 11125159 (Version 2)
Quarter: 2015Q2

REPORT INFORMATION
  Report Type: Spontaneous
  Country: CN (occurrence: CN)
  Receive Date: 20150520
  Receipt Date: 20150602
  Transmission Date: 20150821
  Serious: Yes (Hospitalization, Other)
  Sender: FDA-Public Use
  Company Number: CN-PFIZER INC-2015166704

PATIENT
  Age: 54 Year
  Sex: Male
  Weight: 77 kg

DRUGS (2)
  1. CEFTRIAXONE SODIUM. [Suspect]
     Active Substance: CEFTRIAXONE SODIUM
     Indication: BRONCHITIS
     Dosage: 4 G + 250 ML OF SODIUM CHLORIDE SOLUTION
     Route: 042
  2. CLINDAMYCIN PHOSPHATE. [Suspect]
     Active Substance: CLINDAMYCIN PHOSPHATE
     Dosage: (STRENGTH: 4 ML: 0.3 G) 1.2 G + 250 ML OF SODIUM CHLORIDE SOLUTION
     Route: 042

REACTIONS (2)
  - Acute kidney injury [Recovered/Resolved]
  - Drug administration error [Recovered/Resolved]
